FAERS Safety Report 21279019 (Version 2)
Quarter: 2022Q4

REPORT INFORMATION
  Report Type: Report from Study
  Country: US (occurrence: US)
  Receive Date: 20220901
  Receipt Date: 20221117
  Transmission Date: 20230113
  Serious: Yes (Hospitalization, Other)
  Sender: FDA-Public Use
  Company Number: US-BRISTOL-MYERS SQUIBB COMPANY-2022-095197

PATIENT
  Age: 55 Year
  Sex: Female
  Weight: 95.25 kg

DRUGS (1)
  1. REVLIMID [Suspect]
     Active Substance: LENALIDOMIDE
     Indication: Plasma cell myeloma
     Dosage: 30-SEP-2024
     Route: 048
     Dates: start: 20130910

REACTIONS (6)
  - Kidney infection [Unknown]
  - Nephrolithiasis [Unknown]
  - Hypoaesthesia oral [Unknown]
  - Hypertension [Unknown]
  - Ear infection [Unknown]
  - Pharyngeal hypoaesthesia [Unknown]

NARRATIVE: CASE EVENT DATE: 20210714
